FAERS Safety Report 6315136-8 (Version None)
Quarter: 2009Q3

REPORT INFORMATION
  Report Type: 
  Country: None (occurrence: None)
  Receive Date: 20090817
  Receipt Date: 20090804
  Transmission Date: 20100115
  Serious: Yes (Other)
  Sender: FDA-Public Use
  Company Number: 2009EU002597

PATIENT
  Age: 28 Year
  Sex: Female
  Weight: 67.6 kg

DRUGS (5)
  1. PROGRAF [Suspect]
     Indication: BONE MARROW TRANSPLANT
     Dosage: UID/QD, ORAL
     Route: 048
     Dates: start: 20090101
  2. ACYCLOVIR [Concomitant]
  3. PENICILLIN V [Concomitant]
  4. COTRIM [Concomitant]
  5. FOLIC ACID [Concomitant]

REACTIONS (1)
  - BREAST ATROPHY [None]
